FAERS Safety Report 16739130 (Version 19)
Quarter: 2022Q4

REPORT INFORMATION
  Report Type: Report from Study
  Country: JP (occurrence: JP)
  Receive Date: 20190826
  Receipt Date: 20221027
  Transmission Date: 20230112
  Serious: Yes (Hospitalization)
  Sender: FDA-Public Use
  Company Number: JP-ABBVIE-19K-087-2899192-00

PATIENT
  Age: 73 Year
  Sex: Male
  Weight: 39 kg

DRUGS (5)
  1. CARBIDOPA\LEVODOPA [Suspect]
     Active Substance: CARBIDOPA\LEVODOPA
     Indication: Parkinson^s disease
     Route: 050
     Dates: start: 201906, end: 201906
  2. CARBIDOPA\LEVODOPA [Suspect]
     Active Substance: CARBIDOPA\LEVODOPA
     Dosage: MD:17 ML, CD:4.6 ML/HR A 16 HRS, ED: 0 ML/UNIT A 0
     Route: 050
     Dates: start: 20190627, end: 20200819
  3. CARBIDOPA\LEVODOPA [Suspect]
     Active Substance: CARBIDOPA\LEVODOPA
     Route: 050
     Dates: start: 2019, end: 20191202
  4. CARBIDOPA\LEVODOPA [Suspect]
     Active Substance: CARBIDOPA\LEVODOPA
     Route: 050
  5. ROTIGOTINE [Concomitant]
     Active Substance: ROTIGOTINE
     Indication: Parkinson^s disease
     Dosage: 22.5 MILLIGRAM
     Route: 062

REACTIONS (15)
  - Device dislocation [Recovered/Resolved]
  - Pneumonia [Recovered/Resolved]
  - Pneumonia aspiration [Recovered/Resolved]
  - Pneumonia aspiration [Unknown]
  - Incorrect route of product administration [Recovered/Resolved]
  - Gastric fistula [Unknown]
  - Wrong technique in device usage process [Unknown]
  - Dysstasia [Unknown]
  - Fall [Unknown]
  - Dermatitis contact [Unknown]
  - Malaise [Unknown]
  - Dementia [Unknown]
  - Asthenia [Unknown]
  - Pyrexia [Not Recovered/Not Resolved]
  - Drug ineffective [Unknown]

NARRATIVE: CASE EVENT DATE: 20190101
